FAERS Safety Report 6120423-2 (Version None)
Quarter: 2009Q1

REPORT INFORMATION
  Report Type: 
  Country: None (occurrence: None)
  Receive Date: 20090317
  Receipt Date: 20090312
  Transmission Date: 20090719
  Serious: Yes (Life-Threatening, Other)
  Sender: FDA-Public Use
  Company Number: PHHY2009DE09324

PATIENT
  Age: 78 Year
  Sex: Female
  Weight: 80 kg

DRUGS (13)
  1. DIOVAN HCT [Suspect]
     Indication: HYPERTENSION
     Dosage: 160/25 MG/DAY
     Route: 048
     Dates: start: 20020101, end: 20080818
  2. DOXAZOSIN MESYLATE [Suspect]
     Indication: HYPERTENSION
     Dosage: 4 MG, QD
     Route: 048
     Dates: start: 20050101, end: 20080818
  3. SPIRONOLACTONE [Suspect]
     Indication: HYPERTENSION
     Dosage: 50 MG, QD
     Route: 048
     Dates: start: 20080730, end: 20080818
  4. AMLODIPINE BESYLATE [Concomitant]
     Indication: HYPERTENSION
     Dosage: 10 MG, QD
     Route: 048
     Dates: start: 20000101, end: 20080818
  5. DIGITOXIN TAB [Concomitant]
     Indication: ATRIAL FIBRILLATION
     Dosage: 0.07 MG, QD
     Route: 048
     Dates: start: 20050101, end: 20080818
  6. INEGY 10/20 [Concomitant]
     Indication: HYPERLIPIDAEMIA
     Dosage: 10/20 MG/DAY
     Route: 048
     Dates: start: 20070101, end: 20080818
  7. METOPROLOL TARTRATE [Concomitant]
     Indication: ATRIAL FIBRILLATION
     Dosage: 95 MG, QD
     Route: 048
     Dates: start: 20050101, end: 20080818
  8. PANTOZOL [Concomitant]
     Indication: GASTRITIS HAEMORRHAGIC
     Dosage: 40 MG, BID
     Route: 048
     Dates: start: 20080702
  9. TORSEMIDE [Concomitant]
     Indication: HYPERTENSION
     Dosage: 5 MG, QD
     Route: 048
     Dates: start: 20020101
  10. RAMIPRIL [Concomitant]
  11. PANTOPRAZOLE SODIUM [Concomitant]
  12. ASS 300 [Concomitant]
  13. TORSEMIDE [Concomitant]

REACTIONS (10)
  - ANOREXIA [None]
  - BLOOD PRESSURE DIASTOLIC DECREASED [None]
  - BRADYARRHYTHMIA [None]
  - BUNDLE BRANCH BLOCK LEFT [None]
  - FLUID IMBALANCE [None]
  - HEART RATE DECREASED [None]
  - HEPATIC CIRRHOSIS [None]
  - RENAL FAILURE ACUTE [None]
  - RENAL FAILURE CHRONIC [None]
  - WEIGHT DECREASED [None]
